FAERS Safety Report 13374966 (Version 1)
Quarter: 2017Q1

REPORT INFORMATION
  Report Type: Spontaneous
  Country: US (occurrence: US)
  Receive Date: 20170327
  Receipt Date: 20170327
  Transmission Date: 20170429
  Serious: No
  Sender: FDA-Public Use
  Company Number: US-EMD SERONO-8149911

PATIENT
  Age: 47 Year
  Sex: Female

DRUGS (1)
  1. REBIF [Suspect]
     Active Substance: INTERFERON BETA-1A
     Indication: MULTIPLE SCLEROSIS
     Route: 058

REACTIONS (6)
  - Back disorder [Unknown]
  - Weight increased [Unknown]
  - Panic attack [Unknown]
  - Alopecia [Unknown]
  - Multiple sclerosis relapse [Unknown]
  - Fall [Unknown]
